FAERS Safety Report 7563836-4 (Version None)
Quarter: 2011Q2

REPORT INFORMATION
  Report Type: 
  Country: None (occurrence: None)
  Receive Date: 20110622
  Receipt Date: 20110608
  Transmission Date: 20111010
  Serious: Yes (Death)
  Sender: FDA-Public Use
  Company Number: US-WATSON-2011-08060

PATIENT
  Sex: Female

DRUGS (2)
  1. FENTANYL-75 [Suspect]
     Indication: PAIN
     Dosage: UNK
     Route: 062
     Dates: start: 20100727, end: 20100730
  2. OXYCODONE/APAP                     /00867901/ [Concomitant]
     Indication: PAIN
     Dosage: 1 TABLET EVERY 6 HOURS AS NEEDED FOR PAIN
     Route: 048
     Dates: start: 20100608

REACTIONS (2)
  - TOXICITY TO VARIOUS AGENTS [None]
  - DRUG PRESCRIBING ERROR [None]
